FAERS Safety Report 6266926-1 (Version None)
Quarter: 2009Q3

REPORT INFORMATION
  Report Type: 
  Country: None (occurrence: None)
  Receive Date: 20090710
  Receipt Date: 20090710
  Transmission Date: 20100115
  Serious: Yes (Hospitalization, Disabling)
  Sender: FDA-Public Use
  Company Number: None

PATIENT
  Age: 56 Year
  Sex: Female
  Weight: 54.6 kg

DRUGS (1)
  1. MAXALT [Suspect]
     Indication: MIGRAINE
     Dosage: 1 TABLET PRN PO
     Route: 048
     Dates: start: 20090101, end: 20090705

REACTIONS (2)
  - ACUTE MYOCARDIAL INFARCTION [None]
  - VASOSPASM [None]
